FAERS Safety Report 19941115 (Version 1)
Quarter: 2021Q4

REPORT INFORMATION
  Report Type: Spontaneous
  Country: RO (occurrence: RO)
  Receive Date: 20211011
  Receipt Date: 20211011
  Transmission Date: 20220304
  Serious: Yes (Disabling, Other)
  Sender: FDA-Public Use
  Company Number: RO-ACCORD-240865

PATIENT
  Age: 50 Year
  Sex: Male
  Weight: 91 kg

DRUGS (5)
  1. DOCETAXEL [Suspect]
     Active Substance: DOCETAXEL
     Indication: Product used for unknown indication
     Dosage: STRENGTH: 150MG
     Route: 042
     Dates: start: 20210610, end: 20210610
  2. METOCLOPRAMIDE [Concomitant]
     Active Substance: METOCLOPRAMIDE
     Indication: Antiemetic supportive care
     Dosage: STRENGTH: 10MG
     Route: 048
     Dates: start: 20210610, end: 20210610
  3. HEPARIN SODIUM [Concomitant]
     Active Substance: HEPARIN SODIUM
     Indication: Anticoagulant therapy
     Dosage: STRENGTH: 25.000 IU
     Route: 042
  4. CYCLOPHOSPHAMIDE [Concomitant]
     Active Substance: CYCLOPHOSPHAMIDE
     Indication: Breast cancer
     Dosage: STRENGTH: 1200 MG
     Route: 042
  5. OMERAN [Concomitant]
     Indication: Antacid therapy
     Dosage: 1 TB/DAY
     Route: 048

REACTIONS (5)
  - Abdominal pain [Unknown]
  - Nausea [Unknown]
  - Vomiting [Unknown]
  - Bone pain [Unknown]
  - Myalgia [Unknown]
